FAERS Safety Report 20918684 (Version 1)
Quarter: 2022Q2

REPORT INFORMATION
  Report Type: Spontaneous
  Country: US (occurrence: US)
  Receive Date: 20220606
  Receipt Date: 20220606
  Transmission Date: 20220720
  Serious: No
  Sender: FDA-Public Use
  Company Number: US-GLENMARK PHARMACEUTICALS-2022GMK071497

PATIENT

DRUGS (1)
  1. TACROLIMUS [Suspect]
     Active Substance: TACROLIMUS
     Indication: Dry skin
     Dosage: UNK UNK, BID
     Route: 061

REACTIONS (8)
  - Product use in unapproved indication [Unknown]
  - Drug interaction [Unknown]
  - Rash [Recovered/Resolved]
  - Application site pain [Recovered/Resolved]
  - Burning sensation [Recovered/Resolved]
  - Erythema [Recovered/Resolved]
  - Product label issue [Unknown]
  - Product quality issue [Unknown]
